FAERS Safety Report 17723494 (Version 1)
Quarter: 2020Q2

REPORT INFORMATION
  Report Type: Spontaneous
  Country: US (occurrence: US)
  Receive Date: 20200429
  Receipt Date: 20200429
  Transmission Date: 20200714
  Serious: No
  Sender: FDA-Public Use
  Company Number: None

PATIENT
  Age: 62 Year
  Sex: Female
  Weight: 84.87 kg

DRUGS (18)
  1. CALCIUM [Concomitant]
     Active Substance: CALCIUM
  2. NORCO [Concomitant]
     Active Substance: ACETAMINOPHEN\HYDROCODONE BITARTRATE
  3. ZANAFLEX [Concomitant]
     Active Substance: TIZANIDINE HYDROCHLORIDE
  4. MVI [Concomitant]
     Active Substance: VITAMINS
  5. VIT D [Concomitant]
     Active Substance: VITAMIN D NOS
  6. ALLOPURINOL. [Concomitant]
     Active Substance: ALLOPURINOL
  7. MECLIZINE [Concomitant]
     Active Substance: MECLIZINE HYDROCHLORIDE
  8. PLAQUENIL [Concomitant]
     Active Substance: HYDROXYCHLOROQUINE SULFATE
  9. IBRANCE [Suspect]
     Active Substance: PALBOCICLIB
     Indication: BREAST CANCER
     Route: 048
     Dates: start: 20200409, end: 20200429
  10. MAGOX [Concomitant]
  11. ATIVAN [Concomitant]
     Active Substance: LORAZEPAM
  12. COREG [Concomitant]
     Active Substance: CARVEDILOL
  13. LATANOPROST. [Concomitant]
     Active Substance: LATANOPROST
  14. NABUMETONE. [Concomitant]
     Active Substance: NABUMETONE
  15. ASPIRIN. [Concomitant]
     Active Substance: ASPIRIN
  16. KEPPRA [Concomitant]
     Active Substance: LEVETIRACETAM
  17. ANASTROZOLE. [Concomitant]
     Active Substance: ANASTROZOLE
  18. LASIX [Concomitant]
     Active Substance: FUROSEMIDE

REACTIONS (1)
  - Disease progression [None]
